FAERS Safety Report 9882559 (Version 2)
Quarter: 2014Q3

REPORT INFORMATION
  Report Type: Spontaneous
  Country: US (occurrence: US)
  Receive Date: 20140207
  Receipt Date: 20140804
  Transmission Date: 20150326
  Serious: Yes (Hospitalization, Other)
  Sender: FDA-Public Use
  Company Number: US-009507513-1402USA003465

PATIENT
  Sex: Female
  Weight: 78.46 kg

DRUGS (1)
  1. NUVARING [Suspect]
     Active Substance: ETHINYL ESTRADIOL\ETONOGESTREL
     Indication: CONTRACEPTION
     Dosage: UNK, INSERT RING VAGINALLY FOR 3 WEEKS
     Route: 067
     Dates: start: 20120319

REACTIONS (13)
  - Papilloedema [Unknown]
  - Drug hypersensitivity [Unknown]
  - White blood cell count increased [Unknown]
  - Migraine [Unknown]
  - Jugular vein thrombosis [Unknown]
  - Sexual dysfunction [Unknown]
  - Sickle cell trait [Unknown]
  - Mitral valve prolapse [Unknown]
  - Ischaemia [Unknown]
  - Superior sagittal sinus thrombosis [Recovering/Resolving]
  - Haemorrhage intracranial [Unknown]
  - Hypercoagulation [Unknown]
  - Antiphospholipid antibodies positive [Unknown]

NARRATIVE: CASE EVENT DATE: 20120319
